FAERS Safety Report 4313443-1 (Version None)
Quarter: 2004Q1

REPORT INFORMATION
  Report Type: 
  Country: None (occurrence: None)
  Receive Date: 20040308
  Receipt Date: 20040204
  Transmission Date: 20041129
  Serious: Yes (Disabling)
  Sender: FDA-Public Use
  Company Number: WAES 0402USA00412

PATIENT
  Age: 11 Year
  Sex: Male
  Weight: 60 kg

DRUGS (6)
  1. ZYRTEC [Concomitant]
     Indication: HYPERSENSITIVITY
     Route: 048
     Dates: start: 19970101
  2. EPIPEN [Concomitant]
     Route: 058
     Dates: start: 19970101
  3. FLOVENT [Concomitant]
     Indication: BRONCHOSPASM
     Route: 048
     Dates: start: 19990101
  4. ADVAIR DISKUS 100/50 [Concomitant]
     Route: 048
     Dates: start: 20010101
  5. SINGULAIR [Concomitant]
     Indication: ASTHMA
     Route: 048
     Dates: start: 19991101, end: 20030801
  6. SINGULAIR [Suspect]
     Route: 048
     Dates: start: 20030801, end: 20040201

REACTIONS (3)
  - ANXIETY [None]
  - PARANOIA [None]
  - PRESCRIBED OVERDOSE [None]
